FAERS Safety Report 5092303-5 (Version None)
Quarter: 2006Q3

REPORT INFORMATION
  Report Type: 
  Country: None (occurrence: None)
  Receive Date: 20060825
  Receipt Date: 20060809
  Transmission Date: 20061208
  Serious: Yes (Hospitalization, Disabling)
  Sender: FDA-Public Use
  Company Number: US200606005832

PATIENT
  Sex: Female

DRUGS (3)
  1. HUMULIN N [Suspect]
  2. ZOLOFT [Concomitant]
  3. AMITRIPTYLINE HCL [Concomitant]

REACTIONS (2)
  - AMPUTATION [None]
  - WHEELCHAIR USER [None]
